FAERS Safety Report 5392732-6 (Version None)
Quarter: 2007Q3

REPORT INFORMATION
  Report Type: 
  Country: None (occurrence: None)
  Receive Date: 20070720
  Receipt Date: 20070712
  Transmission Date: 20080115
  Serious: Yes (Death, Hospitalization, Other)
  Sender: FDA-Public Use
  Company Number: US-PFIZER INC-2006147040

PATIENT
  Sex: Male
  Weight: 83.9 kg

DRUGS (2)
  1. CELEBREX [Suspect]
     Indication: PAIN
     Route: 048
     Dates: start: 19990928, end: 20020119
  2. VIOXX [Suspect]
     Indication: OSTEOARTHRITIS
     Route: 048
     Dates: start: 20000701, end: 20011201

REACTIONS (4)
  - ANXIETY [None]
  - MYOCARDIAL INFARCTION [None]
  - RENAL FAILURE [None]
  - SEPSIS [None]
